FAERS Safety Report 5656014-7 (Version None)
Quarter: 2008Q1

REPORT INFORMATION
  Report Type: 
  Country: None (occurrence: None)
  Receive Date: 20080307
  Receipt Date: 20080228
  Transmission Date: 20080703
  Serious: Yes (Death, Hospitalization)
  Sender: FDA-Public Use
  Company Number: US-PFIZER INC-2008018577

PATIENT
  Sex: Female

DRUGS (9)
  1. CELEBREX [Suspect]
     Indication: RHEUMATOID ARTHRITIS
     Dosage: DAILY DOSE:200MG
     Route: 048
     Dates: start: 19990601, end: 20051129
  2. ETANERCEPT [Suspect]
     Indication: RHEUMATOID ARTHRITIS
     Dosage: DAILY DOSE:50MG
     Route: 058
     Dates: start: 20030501, end: 20051129
  3. METHOTREXATE [Suspect]
     Indication: RHEUMATOID ARTHRITIS
     Dosage: DAILY DOSE:15MG
     Route: 048
     Dates: start: 20021201, end: 20051129
  4. FOLIC ACID [Concomitant]
     Dates: start: 20021201, end: 20051129
  5. FUROSEMIDE [Concomitant]
     Dates: start: 20030509, end: 20051129
  6. POTASSIUM CHLORIDE [Concomitant]
     Dates: start: 20031119, end: 20051129
  7. CALCIUM [Concomitant]
     Dates: start: 20031119, end: 20051129
  8. MIRTAZAPINE [Concomitant]
     Dates: start: 20030509, end: 20051129
  9. LAMOTRIGINE [Concomitant]
     Dates: start: 20031119, end: 20051129

REACTIONS (4)
  - LEUKOPENIA [None]
  - PNEUMONIA STREPTOCOCCAL [None]
  - RESPIRATORY FAILURE [None]
  - SEPTIC SHOCK [None]
